FAERS Safety Report 25756988 (Version 3)
Quarter: 2025Q3

REPORT INFORMATION
  Report Type: Report from Study
  Country: US (occurrence: US)
  Receive Date: 20250903
  Receipt Date: 20250925
  Transmission Date: 20251021
  Serious: Yes (Other)
  Sender: MALLINCKRODT
  Company Number: US-MALLINCKRODT-MNK202505221

PATIENT
  Age: 65 Year
  Sex: Female

DRUGS (7)
  1. CORTICOTROPIN [Suspect]
     Active Substance: CORTICOTROPIN
     Indication: Pulmonary sarcoidosis
     Route: 058
     Dates: start: 20250218, end: 2025
  2. CORTICOTROPIN [Suspect]
     Active Substance: CORTICOTROPIN
     Route: 058
     Dates: start: 2025
  3. OXYGEN [Concomitant]
     Active Substance: OXYGEN
  4. ALBUTEROL [Concomitant]
     Active Substance: ALBUTEROL
  5. BUDESONIDE [Concomitant]
     Active Substance: BUDESONIDE
  6. LOSARTAN [Concomitant]
     Active Substance: LOSARTAN
  7. METOPROLOL [Concomitant]
     Active Substance: METOPROLOL

REACTIONS (2)
  - Cardiac sarcoidosis [Unknown]
  - Dry mouth [Unknown]

NARRATIVE: CASE EVENT DATE: 20250101
